FAERS Safety Report 4475513-7 (Version None)
Quarter: 2004Q4

REPORT INFORMATION
  Report Type: 
  Country: None (occurrence: None)
  Receive Date: 20041015
  Receipt Date: 20041001
  Transmission Date: 20050328
  Serious: Yes (Hospitalization, Other)
  Sender: FDA-Public Use
  Company Number: BR-MERCK-0410BRA00053

PATIENT
  Age: 62 Year
  Sex: Female

DRUGS (10)
  1. LEXOTAN [Concomitant]
     Indication: ANTIDEPRESSANT THERAPY
     Route: 065
  2. HIGROTON [Concomitant]
     Route: 065
  3. CIPRAMIL [Concomitant]
     Route: 065
  4. DAONIL [Concomitant]
     Route: 065
  5. INSULIN [Concomitant]
     Route: 065
  6. GLUCOFORMIN [Concomitant]
     Route: 065
  7. CORGARD [Concomitant]
     Indication: HYPERTENSION
     Route: 065
  8. XENICAL [Concomitant]
     Route: 065
  9. VIOXX [Suspect]
     Indication: BACK DISORDER
     Route: 048
     Dates: start: 20021101, end: 20040927
  10. GOPTEN [Concomitant]
     Route: 065

REACTIONS (4)
  - CARDIAC ARREST [None]
  - DIFFICULTY IN WALKING [None]
  - MYOCARDIAL INFARCTION [None]
  - OEDEMA PERIPHERAL [None]
